FAERS Safety Report 6646734-X (Version None)
Quarter: 2010Q1

REPORT INFORMATION
  Report Type: 
  Country: None (occurrence: None)
  Receive Date: 20100323
  Receipt Date: 20100312
  Transmission Date: 20100710
  Serious: Yes (Other)
  Sender: FDA-Public Use
  Company Number: US-AMGEN-KDL393968

PATIENT
  Sex: Male
  Weight: 125.3 kg

DRUGS (4)
  1. NPLATE [Suspect]
     Indication: IDIOPATHIC THROMBOCYTOPENIC PURPURA
     Dates: start: 20091030
  2. RESTORIL [Concomitant]
  3. LEVAQUIN [Concomitant]
  4. SLEEPING MEDICATION NOS [Concomitant]

REACTIONS (3)
  - ARTHRALGIA [None]
  - BONE PAIN [None]
  - CHRONIC LYMPHOCYTIC LEUKAEMIA [None]
